FAERS Safety Report 6269118-5 (Version None)
Quarter: 2009Q3

REPORT INFORMATION
  Report Type: 
  Country: None (occurrence: None)
  Receive Date: 20090715
  Receipt Date: 20090709
  Transmission Date: 20100115
  Serious: Yes (Life-Threatening)
  Sender: FDA-Public Use
  Company Number: JP-MERCK-0906USA04037

PATIENT
  Age: 80 Year
  Sex: Male
  Weight: 35 kg

DRUGS (8)
  1. PRIMAXIN [Suspect]
     Indication: PNEUMONIA
     Route: 042
     Dates: start: 20090611, end: 20090616
  2. FLUCONARL [Suspect]
     Indication: PULMONARY MYCOSIS
     Route: 042
     Dates: start: 20090615, end: 20090615
  3. MINOCYCLINE HYDROCHLORIDE [Concomitant]
     Indication: PNEUMONIA
     Route: 042
     Dates: start: 20090611, end: 20090614
  4. CLEANAL [Concomitant]
     Indication: BRONCHITIS CHRONIC
     Route: 048
     Dates: start: 20081209, end: 20090616
  5. LIMAS [Concomitant]
     Indication: MANIA
     Route: 048
     Dates: start: 20081209, end: 20090615
  6. LASIX [Concomitant]
     Indication: OEDEMA
     Route: 048
     Dates: start: 20081209, end: 20090615
  7. MAGNESIUM OXIDE [Concomitant]
     Indication: CONSTIPATION
     Route: 048
     Dates: start: 20081209, end: 20090615
  8. POTASSIUM GLUCONATE [Concomitant]
     Indication: HYPOKALAEMIA
     Route: 048
     Dates: start: 20081209, end: 20090615

REACTIONS (2)
  - DRUG INTERACTION [None]
  - HYPOGLYCAEMIA [None]
